FAERS Safety Report 6544792-4 (Version None)
Quarter: 2010Q1

REPORT INFORMATION
  Report Type: 
  Country: None (occurrence: None)
  Receive Date: 20100121
  Receipt Date: 20100108
  Transmission Date: 20100710
  Serious: Yes (Death, Hospitalization)
  Sender: FDA-Public Use
  Company Number: US-SANOFI-AVENTIS-F01200800353

PATIENT
  Age: 71 Year
  Sex: Male
  Weight: 77.1 kg

DRUGS (12)
  1. OXALIPLATIN [Suspect]
     Indication: GASTRIC CANCER
     Dosage: UNIT DOSE: 100 MG/M2
     Route: 041
     Dates: start: 20080227, end: 20080227
  2. DOCETAXEL [Suspect]
     Indication: GASTRIC CANCER
     Dosage: UNIT DOSE: 50 MG/M2
     Route: 041
     Dates: start: 20080227, end: 20080227
  3. CAPECITABINE [Suspect]
     Indication: GASTRIC CANCER
     Dosage: UNIT DOSE: 625 MG/M2
     Route: 048
     Dates: start: 20080207, end: 20080229
  4. ATENOLOL [Concomitant]
     Route: 048
     Dates: start: 19970101, end: 20080304
  5. GEMFIBROZIL [Concomitant]
     Route: 048
     Dates: start: 19970101, end: 20080304
  6. GLUCOSE MONOHYDRATE/PLANTAGO OVATA HUSK [Concomitant]
     Route: 048
     Dates: start: 19970101, end: 20080304
  7. ASCORBIC ACID AND TOCOPHERYL ACETATE AND RETINOL AND ZINC AND CALCIUM [Concomitant]
     Route: 048
     Dates: start: 19970101, end: 20080304
  8. ASPIRIN [Concomitant]
     Indication: PROPHYLAXIS
     Route: 048
     Dates: start: 19970101, end: 20080304
  9. PRILOSEC [Concomitant]
     Route: 048
     Dates: start: 20071101, end: 20080304
  10. PHENERGAN ^SPECIA^ [Concomitant]
     Indication: NAUSEA
     Dosage: UNIT DOSE: 25 MG
     Route: 048
     Dates: start: 20080208, end: 20080304
  11. ZOFRAN [Concomitant]
     Indication: NAUSEA
     Dosage: UNIT DOSE: 4 MG
     Route: 048
     Dates: start: 20080208, end: 20080304
  12. HYDROCODONE [Concomitant]
     Indication: ABDOMINAL PAIN
     Dosage: DOSE TEXT: 5/325 MG
     Route: 048
     Dates: start: 20080204, end: 20080304

REACTIONS (2)
  - ENTEROCOLITIS [None]
  - INTESTINAL PERFORATION [None]
